FAERS Safety Report 24729877 (Version 1)
Quarter: 2024Q4

REPORT INFORMATION
  Report Type: Spontaneous
  Country: US (occurrence: US)
  Receive Date: 20241213
  Receipt Date: 20241213
  Transmission Date: 20250115
  Serious: Yes (Hospitalization, Other)
  Sender: BRISTOL-MYERS SQUIBB COMPANY
  Company Number: US-BRISTOL-MYERS SQUIBB COMPANY-2024-188169

PATIENT
  Age: 59 Year
  Sex: Male

DRUGS (4)
  1. LENALIDOMIDE [Suspect]
     Active Substance: LENALIDOMIDE
     Indication: Plasma cell myeloma
     Route: 048
     Dates: start: 20240713, end: 20241126
  2. VELCADE [Concomitant]
     Active Substance: BORTEZOMIB
  3. BORTEZOMIB [Concomitant]
     Active Substance: BORTEZOMIB
  4. ASPIRIN [Concomitant]
     Active Substance: ASPIRIN
     Dates: end: 20241126

REACTIONS (2)
  - Pneumonia [Not Recovered/Not Resolved]
  - Lymphoma [Not Recovered/Not Resolved]

NARRATIVE: CASE EVENT DATE: 20241126
